FAERS Safety Report 6254626-3 (Version None)
Quarter: 2009Q3

REPORT INFORMATION
  Report Type: 
  Country: None (occurrence: None)
  Receive Date: 20090702
  Receipt Date: 20090627
  Transmission Date: 20100115
  Serious: Yes (Other)
  Sender: FDA-Public Use
  Company Number: A0795040A

PATIENT
  Sex: Male
  Weight: 21.9 kg

DRUGS (1)
  1. SERETIDE [Suspect]
     Indication: DRUG USE FOR UNKNOWN INDICATION
     Dosage: 1PUFF THREE TIMES PER DAY
     Route: 055
     Dates: start: 20030101

REACTIONS (2)
  - AGGRESSION [None]
  - OFF LABEL USE [None]
